FAERS Safety Report 24125162 (Version 2)
Quarter: 2024Q3

REPORT INFORMATION
  Report Type: Report from Study
  Country: ES (occurrence: ES)
  Receive Date: 20240723
  Receipt Date: 20240725
  Transmission Date: 20241017
  Serious: Yes (Disabling)
  Sender: ABBVIE
  Company Number: ES-ABBVIE-5846209

PATIENT
  Sex: Female

DRUGS (2)
  1. CARBIDOPA\LEVODOPA [Suspect]
     Active Substance: CARBIDOPA\LEVODOPA
     Indication: Parkinson^s disease
     Route: 050
     Dates: start: 20170206
  2. CARBIDOPA\LEVODOPA [Suspect]
     Active Substance: CARBIDOPA\LEVODOPA

REACTIONS (4)
  - Decubitus ulcer [Not Recovered/Not Resolved]
  - Unevaluable event [Not Recovered/Not Resolved]
  - Weight decreased [Unknown]
  - General physical health deterioration [Unknown]

NARRATIVE: CASE EVENT DATE: 20240101
